FAERS Safety Report 4996213-0 (Version None)
Quarter: 2006Q2

REPORT INFORMATION
  Report Type: 
  Country: None (occurrence: None)
  Receive Date: 20060504
  Receipt Date: 20060427
  Transmission Date: 20061013
  Serious: Yes (Life-Threatening)
  Sender: FDA-Public Use
  Company Number: 06H-087-0306851-00

PATIENT
  Age: 92 Year
  Sex: Male

DRUGS (5)
  1. VANCOMYCIN HCL [Suspect]
     Indication: PATHOGEN RESISTANCE
  2. VANCOMYCIN HCL [Suspect]
     Indication: STAPHYLOCOCCAL INFECTION
  3. TEICOPLANIN (TEICOPLAININ) [Suspect]
     Indication: ENTEROCOCCAL INFECTION
  4. TEICOPLANIN (TEICOPLAININ) [Suspect]
     Indication: MULTIPLE-DRUG RESISTANCE
  5. OXYGEN [Concomitant]

REACTIONS (6)
  - CARDIAC FAILURE CONGESTIVE [None]
  - EOSINOPHILIA [None]
  - HEPATIC FUNCTION ABNORMAL [None]
  - PLEURAL EFFUSION [None]
  - RASH [None]
  - URTICARIA [None]
